FAERS Safety Report 5301326-X (Version None)
Quarter: 2007Q2

REPORT INFORMATION
  Report Type: 
  Country: None (occurrence: None)
  Receive Date: 20070412
  Receipt Date: 20070405
  Transmission Date: 20071010
  Serious: Yes (Other)
  Sender: FDA-Public Use
  Company Number: 2007-01676

PATIENT
  Sex: Female

DRUGS (2)
  1. PRIMIDONE [Suspect]
     Indication: EPILEPSY
     Dosage: 250 MG, QID, ORAL
     Route: 048
  2. LAMOTRIGINE [Suspect]
     Indication: EPILEPSY
     Dosage: 200 MG, BID, ORAL
     Route: 048

REACTIONS (2)
  - CONDITION AGGRAVATED [None]
  - GRAND MAL CONVULSION [None]
